FAERS Safety Report 7025818-0 (Version None)
Quarter: 2010Q4

REPORT INFORMATION
  Report Type: 
  Country: None (occurrence: None)
  Receive Date: 20101004
  Receipt Date: 20100924
  Transmission Date: 20110411
  Serious: Yes (Hospitalization)
  Sender: FDA-Public Use
  Company Number: 199607

PATIENT
  Age: 51 Year
  Sex: Female

DRUGS (2)
  1. AVONEX [Suspect]
     Indication: MULTIPLE SCLEROSIS
     Route: 030
     Dates: start: 20020301, end: 20030701
  2. AVONEX [Suspect]
     Route: 030
     Dates: start: 20030729

REACTIONS (2)
  - BONE DISORDER [None]
  - OSTEOARTHRITIS [None]
